FAERS Safety Report 7787731-0 (Version None)
Quarter: 2011Q3

REPORT INFORMATION
  Report Type: 
  Country: None (occurrence: None)
  Receive Date: 20110929
  Receipt Date: 20110921
  Transmission Date: 20111222
  Serious: Yes (Hospitalization)
  Sender: FDA-Public Use
  Company Number: US-ASTRAZENECA-2011SE56957

PATIENT
  Age: 41 Year
  Sex: Female

DRUGS (2)
  1. NEXIUM [Suspect]
     Route: 048
  2. PRILOSEC [Suspect]
     Route: 048

REACTIONS (5)
  - DEHYDRATION [None]
  - DRUG INEFFECTIVE [None]
  - ULCER [None]
  - EROSIVE OESOPHAGITIS [None]
  - DRUG DOSE OMISSION [None]
